FAERS Safety Report 7640042-6 (Version None)
Quarter: 2011Q3

REPORT INFORMATION
  Report Type: 
  Country: None (occurrence: None)
  Receive Date: 20110727
  Receipt Date: 20110518
  Transmission Date: 20111222
  Serious: Yes (Other)
  Sender: FDA-Public Use
  Company Number: PHHY2011DE42432

PATIENT
  Age: 59 Year
  Sex: Female

DRUGS (1)
  1. FEMARA [Suspect]
     Dosage: UNK
     Dates: end: 20110101

REACTIONS (3)
  - HEPATIC ENZYME INCREASED [None]
  - CARPAL TUNNEL SYNDROME [None]
  - ARTHRALGIA [None]
